FAERS Safety Report 8822633 (Version 1)
Quarter: 2012Q4

REPORT INFORMATION
  Report Type: 
  Country: FR (occurrence: FR)
  Receive Date: 20121003
  Receipt Date: 20121003
  Transmission Date: 20130627
  Serious: Yes (Hospitalization, Other)
  Sender: FDA-Public Use
  Company Number: FR-PFIZER INC-2012242831

PATIENT
  Age: 77 Year
  Sex: Female

DRUGS (15)
  1. CORDARONE [Suspect]
     Indication: ATRIAL FIBRILLATION
     Dosage: 200 mg, daily
     Route: 048
     Dates: start: 20120814
  2. PRADAXA [Interacting]
     Dosage: 110 mg, 2x/day
     Route: 048
     Dates: start: 20120830, end: 20120905
  3. LOVENOX [Concomitant]
     Dosage: UNK
     Dates: start: 20120808, end: 20120820
  4. PLAVIX [Concomitant]
     Dosage: UNK
     Dates: start: 20120808
  5. KARDEGIC [Concomitant]
     Dosage: UNK
     Dates: start: 20120810
  6. TRIATEC [Concomitant]
     Dosage: UNK
     Dates: start: 20120811
  7. LASILIX [Concomitant]
     Dosage: UNK
     Dates: start: 20120813, end: 20120905
  8. INEXIUM [Concomitant]
     Dosage: UNK
     Dates: start: 20120817
  9. COLCHICINE [Concomitant]
     Dosage: UNK
     Dates: start: 20120818, end: 20120905
  10. BISOCE [Concomitant]
     Dosage: UNK
     Dates: start: 20120818
  11. PREVISCAN [Concomitant]
     Dosage: UNK
     Dates: start: 20120820, end: 20120822
  12. IMODIUM [Concomitant]
     Dosage: UNK
     Dates: start: 20120821
  13. TAZOCILLINE [Concomitant]
     Indication: LUNG DISORDER
     Dosage: UNK
     Dates: start: 20120811, end: 20120818
  14. ODRIK [Concomitant]
  15. FLAGYL [Concomitant]
     Indication: LUNG DISORDER
     Dosage: UNK
     Dates: start: 20120811, end: 20120818

REACTIONS (11)
  - Drug interaction [Unknown]
  - Activated partial thromboplastin time prolonged [Recovering/Resolving]
  - Prothrombin time shortened [Recovered/Resolved]
  - International normalised ratio increased [Unknown]
  - Renal failure acute [Unknown]
  - Dehydration [Unknown]
  - Metabolic acidosis [Unknown]
  - Diarrhoea [Unknown]
  - Nausea [Unknown]
  - Vomiting [Unknown]
  - Blood pressure decreased [Unknown]
